FAERS Safety Report 8686456 (Version 3)
Quarter: 2012Q4

REPORT INFORMATION
  Report Type: 
  Country: GB (occurrence: GB)
  Receive Date: 20120725
  Receipt Date: 20121226
  Transmission Date: 20130627
  Serious: Yes (Hospitalization, Other)
  Sender: FDA-Public Use
  Company Number: GB-TEVA-348238ISR

PATIENT
  Age: 69 Year
  Sex: Female
  Weight: 64 kg

DRUGS (19)
  1. METOCLOPRAMIDE [Suspect]
     Indication: PRODUCT USED FOR UNKNOWN INDICATION
     Route: 048
     Dates: start: 20080806, end: 201109
  2. METOCLOPRAMIDE [Suspect]
     Dosage: 30 mg
     Route: 065
     Dates: start: 20120501
  3. PROPRANOLOL [Suspect]
     Indication: PRODUCT USED FOR UNKNOWN INDICATION
     Dosage: 60 Milligram Daily;
     Route: 048
     Dates: start: 20120501
  4. MIRTAZAPINE [Suspect]
     Indication: PRODUCT USED FOR UNKNOWN INDICATION
     Dosage: 30 Milligram Daily;
     Route: 065
     Dates: start: 20120501
  5. MIRTAZAPINE [Suspect]
     Dosage: 15 Milligram Daily;
     Route: 065
  6. SEROXAT [Suspect]
     Indication: DEPRESSION
     Dosage: 40 Milligram Daily;
     Route: 048
     Dates: start: 19970707, end: 20111206
  7. SEROXAT [Suspect]
     Dosage: .5 Tablet Daily;
     Route: 048
     Dates: start: 200102, end: 201005
  8. SEROXAT [Suspect]
     Dosage: 20 Milligram Daily;
     Route: 048
     Dates: start: 201007, end: 201109
  9. SEROXAT [Suspect]
     Dosage: 40 Milligram Daily;
     Route: 048
     Dates: start: 20111013, end: 20111206
  10. TETRABENAZINE [Suspect]
     Indication: PRODUCT USED FOR UNKNOWN INDICATION
     Dosage: 4.5 Milligram Daily;
     Route: 048
     Dates: start: 20111128, end: 20120320
  11. LORAZEPAM [Suspect]
     Indication: PRODUCT USED FOR UNKNOWN INDICATION
     Dosage: 3 Milligram Daily;
     Route: 048
     Dates: start: 20120329, end: 20120523
  12. LORAZEPAM [Suspect]
     Dosage: 1.5 Milligram Daily;
     Dates: start: 2011
  13. ACRIVASTINE [Concomitant]
     Dosage: 24 Milligram Daily;
     Dates: start: 19950728
  14. FENOFIBRATE [Concomitant]
     Dosage: 160 Milligram Daily;
     Dates: start: 20030520
  15. BENDROFLUMETHIAZIDE [Concomitant]
     Dosage: 2.5 Milligram Daily;
     Dates: start: 20050420
  16. RAMIPRIL [Concomitant]
     Dosage: 2.5 Milligram Daily;
     Dates: start: 20080201
  17. BECONASE [Concomitant]
     Dates: start: 20071120
  18. ATORVASTATIN [Concomitant]
     Dosage: 40 Milligram Daily;
     Dates: start: 20031114
  19. LANSOPRAZOLE [Concomitant]
     Dosage: 30 Milligram Daily;
     Dates: start: 20080627

REACTIONS (5)
  - Fall [Not Recovered/Not Resolved]
  - Hallucination [Not Recovered/Not Resolved]
  - Akathisia [Not Recovered/Not Resolved]
  - Eating disorder [Not Recovered/Not Resolved]
  - Muscle contractions involuntary [Not Recovered/Not Resolved]
